FAERS Safety Report 23475624 (Version 1)
Quarter: 2024Q1

REPORT INFORMATION
  Report Type: Report from Study
  Country: US (occurrence: US)
  Receive Date: 20240204
  Receipt Date: 20240204
  Transmission Date: 20240410
  Serious: No
  Sender: FDA-Public Use
  Company Number: US-EXELIXIS-CABO-23060355

PATIENT
  Sex: Male

DRUGS (1)
  1. CABOMETYX [Suspect]
     Active Substance: CABOZANTINIB S-MALATE
     Indication: Ewing^s sarcoma metastatic
     Dosage: 40 MG, QD
     Route: 048
     Dates: start: 20221205

REACTIONS (8)
  - Diplopia [Unknown]
  - Alopecia [Unknown]
  - Hair colour changes [Unknown]
  - Fatigue [Unknown]
  - Pain in extremity [Unknown]
  - Dry skin [Unknown]
  - Nausea [Unknown]
  - Off label use [Unknown]
